FAERS Safety Report 4999225-6 (Version None)
Quarter: 2006Q2

REPORT INFORMATION
  Report Type: 
  Country: None (occurrence: None)
  Receive Date: 20060509
  Receipt Date: 20060509
  Transmission Date: 20061013
  Serious: Yes (Hospitalization, Other)
  Sender: FDA-Public Use
  Company Number: None

PATIENT
  Sex: Female
  Weight: 57.27 kg

DRUGS (11)
  1. CISPLATIN [Suspect]
     Indication: SQUAMOUS CELL CARCINOMA OF THE CERVIX
     Dosage: 86 MG
     Dates: start: 20060407, end: 20060407
  2. NAVELBINE [Suspect]
     Dosage: 104 MG
     Dates: start: 20060407, end: 20060414
  3. COMPAZINE [Concomitant]
  4. DUCCOLUX [Concomitant]
  5. FENTANYL [Concomitant]
  6. MSCOTIN [Concomitant]
  7. MSIR [Concomitant]
  8. OXYBUTIN [Concomitant]
  9. OXYTROL [Concomitant]
  10. PHENERGAN HCL [Concomitant]
  11. ZOFRAN [Concomitant]

REACTIONS (12)
  - ABDOMINAL PAIN [None]
  - CONSTIPATION [None]
  - DISEASE PROGRESSION [None]
  - DYSURIA [None]
  - HAEMATURIA [None]
  - HAEMOGLOBIN DECREASED [None]
  - METASTASES TO LYMPH NODES [None]
  - NAUSEA [None]
  - NEUTROPENIA [None]
  - POLLAKIURIA [None]
  - PYREXIA [None]
  - VOMITING [None]
